FAERS Safety Report 12943377 (Version 9)
Quarter: 2017Q3

REPORT INFORMATION
  Report Type: Spontaneous
  Country: BR (occurrence: BR)
  Receive Date: 20161115
  Receipt Date: 20170929
  Transmission Date: 20171127
  Serious: Yes (Hospitalization, Other)
  Sender: FDA-Public Use
  Company Number: BR-GLAXOSMITHKLINE-BR2015GSK075816

PATIENT
  Sex: Female
  Weight: 66 kg

DRUGS (8)
  1. BENLYSTA [Suspect]
     Active Substance: BELIMUMAB
     Dosage: UNK
     Route: 042
     Dates: start: 20170531
  2. PREDNISONE. [Concomitant]
     Active Substance: PREDNISONE
     Dosage: 4 MG, QD
  3. BENLYSTA [Suspect]
     Active Substance: BELIMUMAB
     Dosage: 600 MG, UNK
     Route: 042
     Dates: start: 20170802
  4. AZATHIOPRINE. [Concomitant]
     Active Substance: AZATHIOPRINE
     Indication: PRODUCT USED FOR UNKNOWN INDICATION
     Dosage: UNK
  5. BENLYSTA [Suspect]
     Active Substance: BELIMUMAB
     Dosage: UNK
     Route: 042
     Dates: start: 20170628
  6. BENLYSTA [Suspect]
     Active Substance: BELIMUMAB
     Indication: SYSTEMIC LUPUS ERYTHEMATOSUS
     Dosage: 610 MG, UNK
     Route: 042
     Dates: start: 20150527
  7. CHLOROQUINE. [Concomitant]
     Active Substance: CHLOROQUINE
     Indication: PRODUCT USED FOR UNKNOWN INDICATION
     Dosage: UNK
  8. PREDNISONE. [Concomitant]
     Active Substance: PREDNISONE
     Indication: PRODUCT USED FOR UNKNOWN INDICATION
     Dosage: 4 MG, QD

REACTIONS (12)
  - Muscular weakness [Unknown]
  - Laboratory test abnormal [Recovering/Resolving]
  - Lung disorder [Not Recovered/Not Resolved]
  - Drug dose omission [Recovered/Resolved]
  - Circumstance or information capable of leading to medication error [Not Recovered/Not Resolved]
  - Inappropriate schedule of drug administration [Unknown]
  - Pneumonia [Recovered/Resolved]
  - Tracheitis [Recovered/Resolved]
  - Bacterial diarrhoea [Unknown]
  - Palpitations [Unknown]
  - Immunodeficiency [Not Recovered/Not Resolved]
  - Product availability issue [Unknown]
